FAERS Safety Report 7284304-3 (Version None)
Quarter: 2011Q1

REPORT INFORMATION
  Report Type: 
  Country: None (occurrence: None)
  Receive Date: 20110209
  Receipt Date: 20110201
  Transmission Date: 20110831
  Serious: Yes (Hospitalization)
  Sender: FDA-Public Use
  Company Number: JP-WATSON-2010-02859

PATIENT
  Age: 52 Year
  Sex: Male

DRUGS (1)
  1. RAPAFLO [Suspect]
     Dosage: UNK
     Route: 048
     Dates: start: 20100306

REACTIONS (2)
  - PARAPLEGIA [None]
  - DIABETES MELLITUS [None]
